FAERS Safety Report 20107504 (Version 2)
Quarter: 2021Q4

REPORT INFORMATION
  Report Type: Spontaneous
  Country: US (occurrence: US)
  Receive Date: 20211124
  Receipt Date: 20211124
  Transmission Date: 20220303
  Serious: Yes (Other)
  Sender: FDA-Public Use
  Company Number: US-GILEAD-2021-0557833

PATIENT
  Sex: Male

DRUGS (24)
  1. BIKTARVY [Suspect]
     Active Substance: BICTEGRAVIR SODIUM\EMTRICITABINE\TENOFOVIR ALAFENAMIDE FUMARATE
     Indication: HIV infection
     Route: 065
  2. TENOFOVIR DISOPROXIL FUMARATE [Suspect]
     Active Substance: TENOFOVIR DISOPROXIL FUMARATE
     Indication: HIV infection
     Route: 065
  3. ABACAVIR [Concomitant]
     Active Substance: ABACAVIR
  4. DIDANOSINE [Concomitant]
     Active Substance: DIDANOSINE
  5. EMTRICITABINE [Concomitant]
     Active Substance: EMTRICITABINE
  6. LAMIVUDINE [Concomitant]
     Active Substance: LAMIVUDINE
  7. STAVUDINE [Concomitant]
     Active Substance: STAVUDINE
  8. ZIDOVUDINE [Concomitant]
     Active Substance: ZIDOVUDINE
  9. DORAVIRINE [Concomitant]
     Active Substance: DORAVIRINE
  10. EFAVIRENZ [Concomitant]
     Active Substance: EFAVIRENZ
  11. ETRAVIRINE [Concomitant]
     Active Substance: ETRAVIRINE
  12. NEVIRAPINE [Concomitant]
     Active Substance: NEVIRAPINE
  13. DOLUTEGRAVIR [Concomitant]
     Active Substance: DOLUTEGRAVIR
  14. ELVITEGRAVIR [Concomitant]
     Active Substance: ELVITEGRAVIR
  15. RALTEGRAVIR [Concomitant]
     Active Substance: RALTEGRAVIR
  16. ATAZANAVIR [Concomitant]
     Active Substance: ATAZANAVIR
  17. DARUNAVIR [Concomitant]
     Active Substance: DARUNAVIR
  18. FOSAMPRENAVIR [Concomitant]
     Active Substance: FOSAMPRENAVIR
  19. INDINAVIR [Concomitant]
     Active Substance: INDINAVIR
  20. LOPINAVIR [Concomitant]
     Active Substance: LOPINAVIR
  21. NELFINAVIR [Concomitant]
     Active Substance: NELFINAVIR
  22. RITONAVIR [Concomitant]
     Active Substance: RITONAVIR
  23. SAQUINAVIR [Concomitant]
     Active Substance: SAQUINAVIR
  24. TIPRANAVIR [Concomitant]
     Active Substance: TIPRANAVIR

REACTIONS (1)
  - Drug resistance [Not Recovered/Not Resolved]
